FAERS Safety Report 8984778 (Version 1)
Quarter: 2012Q4

REPORT INFORMATION
  Report Type: 
  Country: NL (occurrence: NL)
  Receive Date: 20121225
  Receipt Date: 20121225
  Transmission Date: 20130627
  Serious: Yes (Hospitalization)
  Sender: FDA-Public Use
  Company Number: NL-JNJFOC-20121205376

PATIENT
  Age: 64 Year
  Sex: Male
  Weight: 85 kg

DRUGS (24)
  1. OKT3 [Suspect]
     Indication: TRANSPLANT REJECTION
     Route: 065
     Dates: start: 20080507
  2. OKT3 [Suspect]
     Indication: INFECTION
     Route: 065
     Dates: start: 20080507
  3. CIPROFLOXACIN [Suspect]
     Indication: PRODUCT USED FOR UNKNOWN INDICATION
     Route: 065
  4. SIROLIMUS [Suspect]
     Indication: PRODUCT USED FOR UNKNOWN INDICATION
     Route: 065
     Dates: start: 20080724
  5. SIROLIMUS [Suspect]
     Indication: PRODUCT USED FOR UNKNOWN INDICATION
     Route: 065
  6. TACROLIMUS [Concomitant]
     Route: 065
     Dates: start: 20080228
  7. MYCOPHENOLIC ACID [Concomitant]
     Route: 065
     Dates: start: 20080228
  8. PREDNISONE [Concomitant]
     Route: 065
     Dates: start: 20080228
  9. CO-TRIMOXAZOLE [Concomitant]
     Route: 065
     Dates: start: 20080228
  10. CARBASALATE CALCIUM [Concomitant]
     Route: 065
     Dates: start: 19980101
  11. METOPROLOL [Concomitant]
     Route: 065
     Dates: start: 19980101
  12. MONO-CEDOCARD [Concomitant]
     Route: 065
     Dates: start: 19980101
  13. ATORVASTATIN [Concomitant]
     Route: 065
     Dates: start: 20080507
  14. ATORVASTATIN [Concomitant]
     Route: 065
     Dates: start: 19980101
  15. PANTOPRAZOLE [Concomitant]
     Route: 065
     Dates: start: 20080228
  16. FUROSEMIDE [Concomitant]
     Route: 065
     Dates: start: 20080315
  17. FUROSEMIDE [Concomitant]
     Route: 065
     Dates: start: 20080707
  18. NIFEDIPINE [Concomitant]
     Route: 065
     Dates: start: 20080228
  19. VALGANCICLOVIR [Concomitant]
     Route: 065
     Dates: start: 20080507
  20. AUGMENTIN [Concomitant]
     Route: 065
     Dates: start: 20080222
  21. CALCIUM CARBONATE [Concomitant]
     Route: 065
     Dates: start: 20080401
  22. LOPERAMIDE [Concomitant]
     Route: 065
     Dates: start: 20090215
  23. ACENOCOUMAROL [Concomitant]
     Route: 065
     Dates: start: 20080228
  24. INSULIN [Concomitant]
     Route: 065

REACTIONS (6)
  - Systemic inflammatory response syndrome [Recovering/Resolving]
  - Pyrexia [Not Recovered/Not Resolved]
  - Abdominal pain [Not Recovered/Not Resolved]
  - Diarrhoea [Not Recovered/Not Resolved]
  - Gastroenteritis [Not Recovered/Not Resolved]
  - Blood creatinine increased [Not Recovered/Not Resolved]
